FAERS Safety Report 12795251 (Version 2)
Quarter: 2016Q3

REPORT INFORMATION
  Report Type: Spontaneous
  Country: US (occurrence: US)
  Receive Date: 20160929
  Receipt Date: 20160930
  Transmission Date: 20161109
  Serious: No
  Sender: FDA-Public Use
  Company Number: US-PFIZER INC-2016316385

PATIENT
  Sex: Female

DRUGS (5)
  1. CYCLOPHOSPHAMIDE. [Concomitant]
     Active Substance: CYCLOPHOSPHAMIDE
     Indication: NEOPLASM MALIGNANT
     Dosage: 1120 MG, EVERY 2 WEEKS
     Dates: start: 20160211, end: 20160225
  2. EMEND [Concomitant]
     Active Substance: APREPITANT
     Indication: NAUSEA
     Dosage: 150 MG, EVERY 2 WEEKS
     Dates: start: 20160211, end: 20160225
  3. DOXORUBICIN HCL [Suspect]
     Active Substance: DOXORUBICIN HYDROCHLORIDE
     Indication: NEOPLASM MALIGNANT
     Dosage: 50MG PER 25ML VIAL
  4. DOXORUBICIN HCL [Suspect]
     Active Substance: DOXORUBICIN HYDROCHLORIDE
     Dosage: 115 MG, EVERY 2 WEEKS
     Route: 042
     Dates: start: 20160211, end: 20160225
  5. ALOXI [Concomitant]
     Active Substance: PALONOSETRON HYDROCHLORIDE
     Indication: NAUSEA
     Dosage: 0.25 MG, EVERY 2 WEEKS
     Dates: start: 20160211, end: 20160225

REACTIONS (3)
  - Poor quality drug administered [Unknown]
  - Product colour issue [Unknown]
  - Liquid product physical issue [Unknown]
